FAERS Safety Report 26152386 (Version 1)
Quarter: 2025Q4

REPORT INFORMATION
  Report Type: Report from Study
  Country: EU (occurrence: EU)
  Receive Date: 20251214
  Receipt Date: 20251214
  Transmission Date: 20260118
  Serious: Yes (Other)
  Sender: ABBVIE
  Company Number: EU-ABBVIE-6581185

PATIENT
  Age: 70 Year
  Sex: Female

DRUGS (2)
  1. CARBIDOPA\LEVODOPA [Suspect]
     Active Substance: CARBIDOPA\LEVODOPA
     Indication: Parkinson^s disease
     Dosage: MORNING DOSE 4 ML, CONTINUOUS DOSE 1.6 ML/H AND EXTRA DOSE 0.6 ML
     Route: 050
     Dates: start: 20111204, end: 20251203
  2. CARBIDOPA\LEVODOPA [Suspect]
     Active Substance: CARBIDOPA\LEVODOPA
     Dosage: MORNING DOSE 4 ML, CONTINUOUS DOSE 1.4 ML/H AND EXTRA DOSE 0.6 ML
     Route: 050
     Dates: start: 20251203

REACTIONS (6)
  - Deep brain stimulation [Not Recovered/Not Resolved]
  - Hallucination [Not Recovered/Not Resolved]
  - Stoma site erythema [Not Recovered/Not Resolved]
  - Pain in extremity [Not Recovered/Not Resolved]
  - Dyskinesia [Recovering/Resolving]
  - Gait disturbance [Recovering/Resolving]
